FAERS Safety Report 13741726 (Version 2)
Quarter: 2017Q4

REPORT INFORMATION
  Report Type: Spontaneous
  Country: US (occurrence: US)
  Receive Date: 20170711
  Receipt Date: 20171107
  Transmission Date: 20180320
  Serious: No
  Sender: FDA-Public Use
  Company Number: US-PFIZER INC-2017297396

PATIENT
  Age: 53 Year
  Sex: Female

DRUGS (1)
  1. SULFASALAZINE. [Suspect]
     Active Substance: SULFASALAZINE
     Indication: RHEUMATOID ARTHRITIS
     Dosage: UNK
     Dates: start: 201508, end: 201510

REACTIONS (1)
  - Drug ineffective [Unknown]
